FAERS Safety Report 5416873-X (Version None)
Quarter: 2007Q3

REPORT INFORMATION
  Report Type: 
  Country: None (occurrence: None)
  Receive Date: 20070718
  Receipt Date: 20060607
  Transmission Date: 20080115
  Serious: Yes (Hospitalization, Other)
  Sender: FDA-Public Use
  Company Number: 2006057086

PATIENT
  Age: 69 Year
  Sex: Female
  Weight: 67.1324 kg

DRUGS (5)
  1. CELEBREX [Suspect]
     Indication: BACK PAIN
     Dosage: 200 MG (200 MG, 1 IN 1 D)
     Dates: start: 20000301, end: 20030301
  2. ATENOLOL [Concomitant]
  3. ACTOS [Concomitant]
  4. ZOCOR [Concomitant]
  5. GLIPIZIDE [Concomitant]

REACTIONS (1)
  - MYOCARDIAL INFARCTION [None]
